FAERS Safety Report 25075052 (Version 1)
Quarter: 2025Q1

REPORT INFORMATION
  Report Type: Spontaneous
  Country: CA (occurrence: CA)
  Receive Date: 20250313
  Receipt Date: 20250313
  Transmission Date: 20250409
  Serious: Yes (Hospitalization)
  Sender: PFIZER
  Company Number: CA-PFIZER INC-202500054292

PATIENT
  Age: 10 Year
  Sex: Male

DRUGS (1)
  1. NGENLA [Suspect]
     Active Substance: SOMATROGON-GHLA
     Indication: Growth hormone deficiency
     Dosage: 19 MG, WEEKLY (PREFILLED 60MG PEN)
     Route: 058
     Dates: start: 20230629

REACTIONS (1)
  - Gastroenteritis viral [Unknown]
